FAERS Safety Report 23856848 (Version 2)
Quarter: 2024Q2

REPORT INFORMATION
  Report Type: Spontaneous
  Country: US (occurrence: US)
  Receive Date: 20240515
  Receipt Date: 20240603
  Transmission Date: 20240716
  Serious: Yes (Other)
  Sender: FDA-Public Use
  Company Number: US-REGENERON PHARMACEUTICALS, INC.-2024-065419

PATIENT
  Sex: Male

DRUGS (4)
  1. EYLEA HD [Suspect]
     Active Substance: AFLIBERCEPT
     Indication: Neovascular age-related macular degeneration
     Dosage: 8 MG INTO LEFT EYE (FORMULATION: HD VIAL, STRENGTH: 8MG/0.07ML OR 114.3MG/ML)
     Dates: start: 20240117, end: 20240117
  2. ATENOLOL [Concomitant]
     Active Substance: ATENOLOL
     Indication: Product used for unknown indication
  3. PANTOPRAZOLE [Concomitant]
     Active Substance: PANTOPRAZOLE
     Indication: Product used for unknown indication
  4. MINERALS\VITAMINS [Concomitant]
     Active Substance: MINERALS\VITAMINS
     Indication: Product used for unknown indication

REACTIONS (2)
  - Keratic precipitates [Recovered/Resolved]
  - Anterior chamber inflammation [Recovered/Resolved]

NARRATIVE: CASE EVENT DATE: 20240117
